FAERS Safety Report 8555124-4 (Version None)
Quarter: 2012Q3

REPORT INFORMATION
  Report Type: 
  Country: None (occurrence: None)
  Receive Date: 20120731
  Receipt Date: 20120727
  Transmission Date: 20120928
  Serious: Yes (Hospitalization)
  Sender: FDA-Public Use
  Company Number: IT-BAYER-2012-075899

PATIENT
  Age: 88 Year
  Sex: Female

DRUGS (5)
  1. BISOPROLOL FUMARATE [Concomitant]
     Dosage: DAILY DOSE 3.75 MG
  2. LYRICA [Concomitant]
     Dosage: DAILY DOSE 75 MG
  3. RIFAXIMIN [Concomitant]
  4. ASPIRIN [Suspect]
     Indication: PROPHYLAXIS
     Dosage: 100 MG, QD
     Route: 048
     Dates: start: 20100101, end: 20120619
  5. BIFRIZIDE [Concomitant]
     Dosage: DAILY DOSE 42.5 MG

REACTIONS (1)
  - DIVERTICULUM INTESTINAL HAEMORRHAGIC [None]
